FAERS Safety Report 5826440-1 (Version None)
Quarter: 2008Q3

REPORT INFORMATION
  Report Type: 
  Country: None (occurrence: None)
  Receive Date: 20080724
  Receipt Date: 20080721
  Transmission Date: 20090109
  Serious: Yes (Hospitalization, Other)
  Sender: FDA-Public Use
  Company Number: 030982

PATIENT
  Sex: Male

DRUGS (9)
  1. TRAZODONE HCL [Suspect]
     Dosage: TRANSPLACENTAL
     Route: 064
  2. ENBREL [Suspect]
     Dosage: 50 MG, 1/WEEK, TRANSPLACENTAL
     Route: 064
     Dates: start: 20050301
  3. HYDROXYCHLOROQUINE SULFATE [Concomitant]
  4. ENOXAPARIN SODIUM [Concomitant]
  5. BUPROPION HCL [Concomitant]
  6. DULOXETINE [Concomitant]
  7. OMEPRAZOLE [Concomitant]
  8. ONDANSETRON [Concomitant]
  9. PROMETHAZINE [Concomitant]

REACTIONS (4)
  - MATERNAL DRUGS AFFECTING FOETUS [None]
  - PREMATURE BABY [None]
  - PREMATURE RUPTURE OF MEMBRANES [None]
  - RESPIRATORY DISORDER NEONATAL [None]
